FAERS Safety Report 23127187 (Version 2)
Quarter: 2023Q4

REPORT INFORMATION
  Report Type: Spontaneous
  Country: JP (occurrence: JP)
  Receive Date: 20231030
  Receipt Date: 20231108
  Transmission Date: 20240109
  Serious: Yes (Other)
  Sender: FDA-Public Use
  Company Number: JP-JNJFOC-20231063875

PATIENT
  Sex: Female

DRUGS (1)
  1. IMBRUVICA [Suspect]
     Active Substance: IBRUTINIB
     Indication: Product used for unknown indication
     Dosage: IBRUTINIB: FORM STRENGTH 140MG
     Route: 048

REACTIONS (2)
  - Chloroma [Recovered/Resolved]
  - Diabetes mellitus [Recovered/Resolved]
